FAERS Safety Report 16802486 (Version 1)
Quarter: 2019Q3

REPORT INFORMATION
  Report Type: Spontaneous
  Country: IL (occurrence: IL)
  Receive Date: 20190912
  Receipt Date: 20190912
  Transmission Date: 20191005
  Serious: Yes (Other)
  Sender: FDA-Public Use
  Company Number: IL-ROCHE-2405004

PATIENT
  Age: 48 Year
  Sex: Female

DRUGS (2)
  1. TRAZODONE HYDROCHLORIDE. [Concomitant]
     Active Substance: TRAZODONE HYDROCHLORIDE
     Indication: CRANIOCEREBRAL INJURY
     Route: 065
  2. CLONAZEPAM. [Suspect]
     Active Substance: CLONAZEPAM
     Indication: CRANIOCEREBRAL INJURY
     Route: 065

REACTIONS (1)
  - Erythema multiforme [Recovering/Resolving]
